FAERS Safety Report 8266172-6 (Version None)
Quarter: 2012Q1

REPORT INFORMATION
  Report Type: 
  Country: None (occurrence: None)
  Receive Date: 20120327
  Receipt Date: 20100129
  Transmission Date: 20120608
  Serious: Yes (Other)
  Sender: FDA-Public Use
  Company Number: PHEH2009US11472

PATIENT
  Age: 58 Year
  Sex: Female

DRUGS (3)
  1. GLEEVEC [Suspect]
     Indication: CHRONIC MYELOID LEUKAEMIA
     Dosage: 400; 300 MG, QD, ORAL
     Route: 048
     Dates: start: 20020611, end: 20070215
  2. GLEEVEC [Suspect]
     Indication: CHRONIC MYELOID LEUKAEMIA
     Dosage: 400; 300 MG, QD, ORAL
     Route: 048
     Dates: start: 20070215, end: 20070501
  3. GLEEVEC [Suspect]
     Indication: CHRONIC MYELOID LEUKAEMIA
     Dosage: 400; 300 MG, QD, ORAL
     Route: 048
     Dates: start: 20070501, end: 20071215

REACTIONS (19)
  - FEELING ABNORMAL [None]
  - SKIN EXFOLIATION [None]
  - MUSCLE SPASMS [None]
  - ARTHRALGIA [None]
  - SCAR [None]
  - AMNESIA [None]
  - BONE PAIN [None]
  - WEIGHT INCREASED [None]
  - BLISTER [None]
  - TINNITUS [None]
  - FATIGUE [None]
  - DRUG INEFFECTIVE [None]
  - FLUID RETENTION [None]
  - GAIT DISTURBANCE [None]
  - JOINT EFFUSION [None]
  - RASH [None]
  - VERTIGO [None]
  - PERIORBITAL OEDEMA [None]
  - RASH PRURITIC [None]
